FAERS Safety Report 24602134 (Version 2)
Quarter: 2024Q4

REPORT INFORMATION
  Report Type: Report from Study
  Country: EG (occurrence: EG)
  Receive Date: 20241111
  Receipt Date: 20241126
  Transmission Date: 20250115
  Serious: Yes (Hospitalization)
  Sender: BIOGEN
  Company Number: EG-BIOGEN-2024BI01289361

PATIENT
  Age: 22 Year
  Sex: Female
  Weight: 67 kg

DRUGS (6)
  1. TYSABRI [Suspect]
     Active Substance: NATALIZUMAB
     Indication: Multiple sclerosis
     Route: 050
     Dates: start: 20240310
  2. OSTEOCARE [Concomitant]
     Active Substance: CALCIUM\CHOLECALCIFEROL\MAGNESIUM\ZINC
     Indication: Supplementation therapy
     Route: 050
  3. CERVITAM [Concomitant]
     Indication: Supplementation therapy
     Route: 050
  4. MIDAZOLAM [Concomitant]
     Active Substance: MIDAZOLAM
     Indication: Fatigue
     Route: 050
  5. TEGRETOL [Concomitant]
     Active Substance: CARBAMAZEPINE
     Indication: Product used for unknown indication
     Route: 050
  6. DALFAROSIS [Concomitant]
     Indication: Product used for unknown indication
     Route: 050

REACTIONS (1)
  - Multiple sclerosis relapse [Not Recovered/Not Resolved]

NARRATIVE: CASE EVENT DATE: 20241012
